FAERS Safety Report 4622503-7 (Version None)
Quarter: 2005Q1

REPORT INFORMATION
  Report Type: 
  Country: None (occurrence: None)
  Receive Date: 20050325
  Receipt Date: 20050325
  Transmission Date: 20050727
  Serious: Yes (Hospitalization)
  Sender: FDA-Public Use
  Company Number: None

PATIENT
  Age: 43 Year
  Sex: Male
  Weight: 113.4 kg

DRUGS (12)
  1. LISINOPRIL [Suspect]
     Dosage: 10MG QD, BY MOUTH
     Route: 048
     Dates: start: 20040517, end: 20041012
  2. ASPIRIN [Concomitant]
  3. DOCUSATE SODIUM (COLACE) [Concomitant]
  4. QUETIAPINE FUMARATE [Concomitant]
  5. TEMAZEPAM (RESTORIL) [Concomitant]
  6. AMITRIPTYLINE HCL [Concomitant]
  7. MIRTAZAPINE [Concomitant]
  8. SERTRALINE HCL [Concomitant]
  9. SIMVASTATIN [Concomitant]
  10. ATENOLOL [Concomitant]
  11. ABILIFY [Concomitant]
  12. OLANZAPINE [Concomitant]

REACTIONS (1)
  - ANGIONEUROTIC OEDEMA [None]
